FAERS Safety Report 9018423 (Version 1)
Quarter: 2013Q1

REPORT INFORMATION
  Report Type: Spontaneous
  Country: US (occurrence: None)
  Receive Date: 20130111
  Receipt Date: 20130111
  Transmission Date: 20140127
  Serious: Yes (Life-Threatening, Hospitalization)
  Sender: FDA-Public Use
  Company Number: None

PATIENT
  Age: 74 Year
  Sex: Male
  Weight: 71.1 kg

DRUGS (3)
  1. PLERIXAFOR [Suspect]
     Dosage: DAYS 1-5
     Route: 058
     Dates: start: 20121015, end: 20121221
  2. G-CSF [Suspect]
     Dosage: DAYS 1-5
     Route: 058
     Dates: start: 20121015, end: 20121221
  3. AZACITIDINE [Suspect]
     Dosage: DAYS 1-5
     Route: 058
     Dates: start: 20121015, end: 20121221

REACTIONS (2)
  - Pneumonia [None]
  - Respiratory failure [None]
